FAERS Safety Report 18540205 (Version 2)
Quarter: 2020Q4

REPORT INFORMATION
  Report Type: Spontaneous
  Country: FR (occurrence: FR)
  Receive Date: 20201124
  Receipt Date: 20201221
  Transmission Date: 20210114
  Serious: Yes (Hospitalization)
  Sender: FDA-Public Use
  Company Number: FR-PFIZER INC-2020458174

PATIENT
  Age: 60 Year
  Sex: Female
  Weight: 65 kg

DRUGS (3)
  1. PACLITAXEL. [Suspect]
     Active Substance: PACLITAXEL
     Indication: INVASIVE DUCTAL BREAST CARCINOMA
     Dosage: 132 MG, WEEKLY
     Route: 042
     Dates: start: 20200716, end: 20200903
  2. KANJINTI [Suspect]
     Active Substance: TRASTUZUMAB-ANNS
     Indication: INVASIVE DUCTAL BREAST CARCINOMA
     Dosage: 525 MG, EVERY 3 WEEKS
     Route: 042
     Dates: start: 20200716, end: 20200716
  3. KANJINTI [Suspect]
     Active Substance: TRASTUZUMAB-ANNS
     Indication: INVASIVE DUCTAL BREAST CARCINOMA
     Dosage: 378 MG, EVERY 3 WEEKS
     Route: 042
     Dates: start: 20200813, end: 20200903

REACTIONS (4)
  - Off label use [Unknown]
  - Acute pulmonary oedema [Recovered/Resolved]
  - Cardiac failure [Recovering/Resolving]
  - Dyspnoea [Recovering/Resolving]

NARRATIVE: CASE EVENT DATE: 20200716
